FAERS Safety Report 9782455 (Version 1)
Quarter: 2013Q4

REPORT INFORMATION
  Report Type: Spontaneous
  Country: US (occurrence: US)
  Receive Date: 20131226
  Receipt Date: 20131226
  Transmission Date: 20140711
  Serious: Yes (Other)
  Sender: FDA-Public Use
  Company Number: GXBR2013US002195

PATIENT
  Age: 86 Year
  Sex: Male
  Weight: 83.9 kg

DRUGS (1)
  1. TRIAMCINOLONE ACETONIDE [Suspect]
     Indication: PRURITUS
     Dosage: UNK DF, UNK
     Route: 061
     Dates: end: 2013

REACTIONS (1)
  - Age-related macular degeneration [Unknown]
